FAERS Safety Report 8784968 (Version 1)
Quarter: 2012Q4

REPORT INFORMATION
  Report Type: Report from Study
  Country: CA (occurrence: CA)
  Receive Date: 20120914
  Receipt Date: 20120914
  Transmission Date: 20130627
  Serious: Yes (Other)
  Sender: FDA-Public Use
  Company Number: CA-JNJFOC-20120901804

PATIENT
  Sex: Male
  Weight: 57 kg

DRUGS (2)
  1. REMICADE [Suspect]
     Indication: CROHN^S DISEASE
     Route: 042
     Dates: start: 2004
  2. METHOTREXATE [Concomitant]
     Dosage: 3 tablets every week, off and on for several years
     Route: 065

REACTIONS (1)
  - Epistaxis [Not Recovered/Not Resolved]
